FAERS Safety Report 4378597-X (Version None)
Quarter: 2004Q2

REPORT INFORMATION
  Report Type: 
  Country: None (occurrence: None)
  Receive Date: 20040609
  Receipt Date: 20040527
  Transmission Date: 20050107
  Serious: Yes (Hospitalization)
  Sender: FDA-Public Use
  Company Number: 2004-116533-NL

PATIENT
  Age: 33 Year
  Sex: Female
  Weight: 68 kg

DRUGS (1)
  1. CYCLESSA [Suspect]
     Indication: OVARIAN CYST
     Dosage: 1 DF DAILY ORAL
     Route: 048
     Dates: start: 20040101

REACTIONS (4)
  - BLOOD GLUCOSE INCREASED [None]
  - HYPOKALAEMIA [None]
  - PULMONARY EMBOLISM [None]
  - TACHYCARDIA [None]
